FAERS Safety Report 4640998-X (Version None)
Quarter: 2005Q2

REPORT INFORMATION
  Report Type: 
  Country: None (occurrence: None)
  Receive Date: 20050419
  Receipt Date: 20050419
  Transmission Date: 20051028
  Serious: No
  Sender: FDA-Public Use
  Company Number: None

PATIENT
  Age: 59 Year
  Sex: Male

DRUGS (1)
  1. VISIPAQUE [Suspect]
     Indication: INTERMITTENT CLAUDICATION

REACTIONS (3)
  - CHEST PAIN [None]
  - DYSPNOEA [None]
  - POST PROCEDURAL COMPLICATION [None]
